FAERS Safety Report 5892921-8 (Version None)
Quarter: 2008Q3

REPORT INFORMATION
  Report Type: 
  Country: None (occurrence: None)
  Receive Date: 20080922
  Receipt Date: 20080922
  Transmission Date: 20090109
  Serious: No
  Sender: FDA-Public Use
  Company Number: None

PATIENT
  Age: 54 Year
  Sex: Female
  Weight: 58.9676 kg

DRUGS (1)
  1. ZETIA [Suspect]
     Indication: BLOOD CHOLESTEROL INCREASED
     Dosage: 1 PO
     Route: 048
     Dates: start: 20080615, end: 20080730

REACTIONS (9)
  - ABASIA [None]
  - ARTHRALGIA [None]
  - FATIGUE [None]
  - FORMICATION [None]
  - PAIN IN EXTREMITY [None]
  - PRURITUS [None]
  - SOMNOLENCE [None]
  - TONGUE DISCOLOURATION [None]
  - TONGUE DISORDER [None]
